FAERS Safety Report 15471397 (Version 1)
Quarter: 2018Q4

REPORT INFORMATION
  Report Type: Report from Study
  Country: JP (occurrence: JP)
  Receive Date: 20181006
  Receipt Date: 20181006
  Transmission Date: 20190205
  Serious: Yes (Death, Other)
  Sender: FDA-Public Use
  Company Number: JP-AMGEN-JPNNI2018137029

PATIENT
  Age: 70 Year
  Sex: Female

DRUGS (5)
  1. ETELCALCETIDE [Suspect]
     Active Substance: ETELCALCETIDE
     Indication: HYPERPARATHYROIDISM SECONDARY
     Dosage: 5 MG, 3 TIMES/WK
     Route: 042
     Dates: start: 20170826, end: 20180127
  2. KIKLIN [Concomitant]
     Active Substance: BIXALOMER
     Dosage: UNK
     Dates: end: 20171009
  3. RIONA [Concomitant]
     Active Substance: FERRIC CITRATE ANHYDROUS
     Dosage: UNK
     Dates: start: 20171010
  4. OXAROL [Concomitant]
     Active Substance: MAXACALCITOL
     Dosage: 7.5 MCG, UNK
     Dates: end: 20170907
  5. OXAROL [Concomitant]
     Active Substance: MAXACALCITOL
     Dosage: 15 MCG, UNK
     Dates: start: 20170909

REACTIONS (1)
  - Death [Fatal]

NARRATIVE: CASE EVENT DATE: 20180129
